FAERS Safety Report 4658689-8 (Version None)
Quarter: 2005Q2

REPORT INFORMATION
  Report Type: 
  Country: None (occurrence: None)
  Receive Date: 20050510
  Receipt Date: 20050510
  Transmission Date: 20051028
  Serious: No
  Sender: FDA-Public Use
  Company Number: None

PATIENT
  Sex: Male
  Weight: 86 kg

DRUGS (2)
  1. CISPLATIN [Suspect]
     Indication: NEOPLASM MALIGNANT
     Dosage: 100 MG/M2 X 3 TREATMENTS
     Dates: start: 20050323, end: 20050414
  2. RADIATION THERAPY [Suspect]
     Dosage: 70 GY IN 35 FRACTIONS
     Dates: start: 20050323, end: 20050509

REACTIONS (7)
  - COUGH [None]
  - DYSPHAGIA [None]
  - MUCOSAL INFLAMMATION [None]
  - ODYNOPHAGIA [None]
  - PYREXIA [None]
  - RADIATION ASSOCIATED PAIN [None]
  - RADIATION SKIN INJURY [None]
